FAERS Safety Report 5639897-6 (Version None)
Quarter: 2008Q1

REPORT INFORMATION
  Report Type: 
  Country: None (occurrence: None)
  Receive Date: 20080226
  Receipt Date: 20080226
  Transmission Date: 20080703
  Serious: Yes (Other)
  Sender: FDA-Public Use
  Company Number: None

PATIENT
  Age: 74 Year
  Sex: Male
  Weight: 102.9665 kg

DRUGS (1)
  1. VISIPAQUE [Suspect]
     Indication: ANGIOGRAM
     Dosage: 90 ML ONCE IV
     Route: 042
     Dates: start: 20080219, end: 20080219

REACTIONS (4)
  - BLINDNESS [None]
  - EYE PAIN [None]
  - HEADACHE [None]
  - VISUAL FIELD DEFECT [None]
